FAERS Safety Report 8997733 (Version 1)
Quarter: 2013Q1

REPORT INFORMATION
  Report Type: Report from Study
  Country: US (occurrence: US)
  Receive Date: 20130104
  Receipt Date: 20130104
  Transmission Date: 20140127
  Serious: Yes (Hospitalization)
  Sender: FDA-Public Use
  Company Number: US-ROCHE-1176361

PATIENT
  Sex: Female

DRUGS (2)
  1. CAPECITABINE [Suspect]
     Indication: PRODUCT USED FOR UNKNOWN INDICATION
     Route: 048
  2. CELEBREX [Concomitant]
     Route: 048

REACTIONS (2)
  - Abdominal operation [Unknown]
  - Dyspnoea exertional [Not Recovered/Not Resolved]
